FAERS Safety Report 7505934-7 (Version None)
Quarter: 2011Q2

REPORT INFORMATION
  Report Type: 
  Country: None (occurrence: None)
  Receive Date: 20110411
  Receipt Date: 20110203
  Transmission Date: 20111010
  Serious: Yes (Hospitalization)
  Sender: FDA-Public Use
  Company Number: AE 2011-043

PATIENT
  Age: 19 Year
  Sex: Male
  Weight: 127.0072 kg

DRUGS (3)
  1. FAZACLO ODT [Suspect]
     Indication: SCHIZOAFFECTIVE DISORDER
     Dosage: 550 MG DAILY ORAL
     Route: 048
     Dates: start: 20040101
  2. CYMBALTA [Concomitant]
  3. LITHIUM CARBONATE [Concomitant]

REACTIONS (3)
  - BLOOD CHOLESTEROL INCREASED [None]
  - CONVULSION [None]
  - WEIGHT INCREASED [None]
